FAERS Safety Report 12413484 (Version 2)
Quarter: 2016Q2

REPORT INFORMATION
  Report Type: Spontaneous
  Country: GH (occurrence: GH)
  Receive Date: 20160527
  Receipt Date: 20160614
  Transmission Date: 20160815
  Serious: Yes (Other)
  Sender: FDA-Public Use
  Company Number: GH-VALIDUS PHARMACEUTICALS LLC-GH-2016VAL001713

PATIENT

DRUGS (1)
  1. LASIX [Suspect]
     Active Substance: FUROSEMIDE
     Indication: PRODUCT USED FOR UNKNOWN INDICATION
     Dosage: UNK

REACTIONS (6)
  - Weight decreased [Unknown]
  - Dehydration [Unknown]
  - Blood pressure decreased [Unknown]
  - Hypertension [Unknown]
  - Weight increased [Unknown]
  - Fluid overload [Unknown]
